FAERS Safety Report 4331201-9 (Version None)
Quarter: 2004Q1

REPORT INFORMATION
  Report Type: 
  Country: None (occurrence: None)
  Receive Date: 20040329
  Receipt Date: 20040318
  Transmission Date: 20041129
  Serious: Yes (Other)
  Sender: FDA-Public Use
  Company Number: 2004018905

PATIENT
  Age: 56 Year
  Sex: Female

DRUGS (2)
  1. ACCUPRIL [Suspect]
     Indication: HYPERTENSION
     Dosage: 10 MG, (DAILY), ORAL
     Route: 048
     Dates: start: 20030101, end: 20040313
  2. MOMETASONE FUROATE [Concomitant]

REACTIONS (3)
  - ANAPHYLACTOID REACTION [None]
  - DIARRHOEA [None]
  - SWELLING FACE [None]
